FAERS Safety Report 12723576 (Version 1)
Quarter: 2016Q3

REPORT INFORMATION
  Report Type: Spontaneous
  Country: US (occurrence: US)
  Receive Date: 20160902
  Receipt Date: 20160902
  Transmission Date: 20161109
  Serious: Yes (Hospitalization)
  Sender: FDA-Public Use
  Company Number: None

PATIENT
  Age: 60 Year
  Sex: Female
  Weight: 61 kg

DRUGS (3)
  1. METFORMIN HYDROCHLORIDE. [Suspect]
     Active Substance: METFORMIN HYDROCHLORIDE
     Dates: end: 20160829
  2. CARBOPLATIN. [Suspect]
     Active Substance: CARBOPLATIN
     Dates: end: 20160819
  3. TAXOL [Suspect]
     Active Substance: PACLITAXEL
     Dates: end: 20160819

REACTIONS (6)
  - Small intestinal obstruction [None]
  - Hypercalcaemia [None]
  - White blood cell count increased [None]
  - Tachycardia [None]
  - Hyperphosphataemia [None]
  - Acute kidney injury [None]

NARRATIVE: CASE EVENT DATE: 20160829
